FAERS Safety Report 22240295 (Version 1)
Quarter: 2023Q2

REPORT INFORMATION
  Report Type: Report from Study
  Country: US (occurrence: None)
  Receive Date: 20230421
  Receipt Date: 20230421
  Transmission Date: 20230721
  Serious: Yes (Death)
  Sender: FDA-Public Use
  Company Number: 2023A091722

PATIENT
  Age: 27934 Day
  Sex: Male
  Weight: 86.6 kg

DRUGS (14)
  1. LYNPARZA [Suspect]
     Active Substance: OLAPARIB
     Indication: Prostate cancer
     Route: 048
     Dates: start: 20221102
  2. SENNA-S [Concomitant]
     Active Substance: DOCUSATE SODIUM\SENNOSIDES
  3. CALCIUM [Concomitant]
     Active Substance: CALCIUM
  4. TAMSULOSIN HYDROCHLORIDE [Concomitant]
     Active Substance: TAMSULOSIN HYDROCHLORIDE
  5. PREDNISONE [Concomitant]
     Active Substance: PREDNISONE
  6. STOOL SOFTENER (DOCUSATE) [Concomitant]
     Active Substance: DOCUSATE
  7. GABAPENTIN [Concomitant]
     Active Substance: GABAPENTIN
  8. ZINC [Concomitant]
     Active Substance: ZINC
  9. GABAPENTIN [Concomitant]
     Active Substance: GABAPENTIN
  10. SIMVASTATIN [Concomitant]
     Active Substance: SIMVASTATIN
  11. XGEVA [Concomitant]
     Active Substance: DENOSUMAB
  12. OMEPRAZOLE [Concomitant]
     Active Substance: OMEPRAZOLE
  13. PROAIR DIGIHALER [Concomitant]
     Active Substance: ALBUTEROL SULFATE
  14. ONDANSETRON HYDROCHLORIDE [Concomitant]
     Active Substance: ONDANSETRON HYDROCHLORIDE

REACTIONS (1)
  - Death [Fatal]

NARRATIVE: CASE EVENT DATE: 20230410
